FAERS Safety Report 15549379 (Version 1)
Quarter: 2018Q4

REPORT INFORMATION
  Report Type: Spontaneous
  Country: US (occurrence: US)
  Receive Date: 20181025
  Receipt Date: 20181025
  Transmission Date: 20190205
  Serious: No
  Sender: FDA-Public Use
  Company Number: US-PFIZER INC-2018371186

PATIENT
  Age: 72 Year
  Sex: Female
  Weight: 81.65 kg

DRUGS (3)
  1. SPIRONOLACTONE. [Suspect]
     Active Substance: SPIRONOLACTONE
     Indication: HIRSUTISM
     Dosage: 200 MG, UNK
  2. SPIRONOLACTONE. [Suspect]
     Active Substance: SPIRONOLACTONE
     Dosage: 100 MG, DAILY (AT NIGHT)
     Route: 048
  3. GABAPENTIN. [Concomitant]
     Active Substance: GABAPENTIN
     Dosage: UNK

REACTIONS (5)
  - Hair growth abnormal [Unknown]
  - Condition aggravated [Unknown]
  - Product use in unapproved indication [Unknown]
  - Malaise [Unknown]
  - Intentional product use issue [Unknown]

NARRATIVE: CASE EVENT DATE: 201808
